FAERS Safety Report 23967978 (Version 1)
Quarter: 2024Q2

REPORT INFORMATION
  Report Type: Report from Study
  Country: US (occurrence: US)
  Receive Date: 20240612
  Receipt Date: 20240612
  Transmission Date: 20240716
  Serious: Yes (Death, Life-Threatening, Hospitalization, Other)
  Sender: FDA-Public Use
  Company Number: US-JAZZ PHARMACEUTICALS-2024-US-007661

PATIENT
  Age: 51 Year
  Sex: Male

DRUGS (1)
  1. VYXEOS [Suspect]
     Active Substance: CYTARABINE\DAUNORUBICIN
     Indication: Product used for unknown indication
     Dosage: UNK

REACTIONS (16)
  - Sepsis [Fatal]
  - Acute respiratory distress syndrome [Not Recovered/Not Resolved]
  - Respiratory failure [Unknown]
  - Vomiting [Recovered/Resolved]
  - Acute kidney injury [Not Recovered/Not Resolved]
  - Liver disorder [Not Recovered/Not Resolved]
  - Pulmonary oedema [Not Recovered/Not Resolved]
  - Pneumomediastinum [Recovered/Resolved]
  - Arrhythmia [Not Recovered/Not Resolved]
  - Electrocardiogram QT prolonged [Recovered/Resolved]
  - Gastrointestinal haemorrhage [Recovered/Resolved]
  - Epistaxis [Recovered/Resolved]
  - Fungal infection [Not Recovered/Not Resolved]
  - Mediastinitis [Not Recovered/Not Resolved]
  - Pericarditis [Recovered/Resolved]
  - Sinus tachycardia [Recovered/Resolved]

NARRATIVE: CASE EVENT DATE: 20190425
